FAERS Safety Report 6357847-4 (Version None)
Quarter: 2009Q3

REPORT INFORMATION
  Report Type: 
  Country: None (occurrence: None)
  Receive Date: 20090916
  Receipt Date: 20090908
  Transmission Date: 20100115
  Serious: Yes (Other)
  Sender: FDA-Public Use
  Company Number: PHHY2009CA36621

PATIENT
  Sex: Female

DRUGS (13)
  1. RASILEZ [Suspect]
     Indication: HYPERTENSION
     Dosage: 300 MG DAILY
     Route: 048
     Dates: start: 20090114, end: 20090407
  2. AVALIDE [Concomitant]
     Dosage: 330/25 MG
  3. KETOROLAC TROMETHAMINE [Concomitant]
     Dosage: 10 MG, TID
  4. PARIET [Concomitant]
     Dosage: 20 MG, QD
  5. ELTROXIN [Concomitant]
     Dosage: 100 MG
  6. LYRICA [Concomitant]
     Dosage: 75 MG
  7. ZOCOR [Concomitant]
     Dosage: 20 MG
  8. ACTONEL [Concomitant]
     Dosage: 35 MG WEEKLY
  9. CELEXA [Concomitant]
     Dosage: 30 MG, QD
  10. METFORMIN HCL [Concomitant]
     Dosage: 2500
  11. GLYBURIDE [Concomitant]
     Dosage: 5 MG, TID
  12. MONOCOR [Concomitant]
     Dosage: 10 MG, QD
  13. LANTUS [Concomitant]
     Dosage: 36 IU, UNK

REACTIONS (2)
  - ALANINE AMINOTRANSFERASE INCREASED [None]
  - ASPARTATE AMINOTRANSFERASE INCREASED [None]
